FAERS Safety Report 23187236 (Version 1)
Quarter: 2023Q4

REPORT INFORMATION
  Report Type: Spontaneous
  Country: US (occurrence: None)
  Receive Date: 20231115
  Receipt Date: 20231115
  Transmission Date: 20240110
  Serious: Yes (Hospitalization)
  Sender: FDA-Public Use
  Company Number: None

PATIENT
  Sex: Male
  Weight: 56 kg

DRUGS (4)
  1. FLUOROURACIL [Suspect]
     Active Substance: FLUOROURACIL
     Dosage: OTHER QUANTITY : 3800MG TOTAL;?
     Dates: end: 20230802
  2. CAMPTOSAR [Suspect]
     Active Substance: IRINOTECAN HYDROCHLORIDE
     Dates: end: 20230802
  3. LEUCOVORIN [Suspect]
     Active Substance: LEUCOVORIN\LEUCOVORIN CALCIUM
     Dosage: OTHER QUANTITY : 32.5ML;?
     Dates: end: 20230802
  4. OXALIPLATIN [Suspect]
     Active Substance: OXALIPLATIN
     Dates: end: 20230802

REACTIONS (6)
  - Haemorrhoids thrombosed [None]
  - Anal fissure [None]
  - Rectal abscess [None]
  - Hypertransaminasaemia [None]
  - Proctalgia [None]
  - Biliary dilatation [None]

NARRATIVE: CASE EVENT DATE: 20230809
